FAERS Safety Report 25629972 (Version 1)
Quarter: 2025Q3

REPORT INFORMATION
  Report Type: Report from Study
  Country: UY (occurrence: UY)
  Receive Date: 20250731
  Receipt Date: 20250731
  Transmission Date: 20251021
  Serious: Yes (Hospitalization)
  Sender: ABBVIE
  Company Number: UY-ABBVIE-6391751

PATIENT
  Age: 81 Year
  Sex: Female

DRUGS (1)
  1. RINVOQ [Suspect]
     Active Substance: UPADACITINIB
     Indication: Rheumatoid arthritis
     Route: 048
     Dates: start: 20220429

REACTIONS (9)
  - Pain [Recovered/Resolved]
  - Urinary tract infection [Unknown]
  - Nephrolithiasis [Unknown]
  - Pyrexia [Recovered/Resolved]
  - Chills [Recovered/Resolved]
  - Discoloured vomit [Recovered/Resolved]
  - Influenza [Recovered/Resolved]
  - Productive cough [Recovered/Resolved]
  - Aphonia [Recovering/Resolving]

NARRATIVE: CASE EVENT DATE: 20250601
